FAERS Safety Report 14325747 (Version 2)
Quarter: 2018Q1

REPORT INFORMATION
  Report Type: Spontaneous
  Country: AR (occurrence: AR)
  Receive Date: 20171226
  Receipt Date: 20180105
  Transmission Date: 20180509
  Serious: Yes (Hospitalization)
  Sender: FDA-Public Use
  Company Number: AR-ABBVIE-17P-007-2204321-00

PATIENT
  Age: 36 Year
  Sex: Female

DRUGS (6)
  1. ERGOTAMINE TARTRATE. [Interacting]
     Active Substance: ERGOTAMINE TARTRATE
     Indication: HIV INFECTION
     Route: 065
  2. KALETRA [Suspect]
     Active Substance: LOPINAVIR\RITONAVIR
     Indication: HIV INFECTION
     Route: 048
  3. LAMIVUDINE. [Interacting]
     Active Substance: LAMIVUDINE
     Route: 065
  4. LAMIVUDINE. [Interacting]
     Active Substance: LAMIVUDINE
     Indication: HIV INFECTION
     Route: 065
  5. ZIDOVUDINE. [Interacting]
     Active Substance: ZIDOVUDINE
     Route: 065
  6. ZIDOVUDINE. [Interacting]
     Active Substance: ZIDOVUDINE
     Indication: HIV INFECTION
     Route: 065

REACTIONS (2)
  - Drug interaction [Recovered/Resolved]
  - Ergot poisoning [Recovered/Resolved]
